FAERS Safety Report 12619760 (Version 1)
Quarter: 2016Q3

REPORT INFORMATION
  Report Type: Spontaneous
  Country: FR (occurrence: FR)
  Receive Date: 20160803
  Receipt Date: 20160803
  Transmission Date: 20161109
  Serious: Yes (Life-Threatening)
  Sender: FDA-Public Use
  Company Number: FR-PFIZER INC-2016369608

PATIENT
  Age: 56 Year
  Sex: Female

DRUGS (9)
  1. LYRICA [Suspect]
     Active Substance: PREGABALIN
     Dosage: 150 MG, SINGLE
     Route: 048
     Dates: start: 20160723, end: 20160723
  2. ALPRAZOLAM. [Concomitant]
     Active Substance: ALPRAZOLAM
  3. LOVENOX [Concomitant]
     Active Substance: ENOXAPARIN SODIUM
  4. LANSOPRAZOLE. [Concomitant]
     Active Substance: LANSOPRAZOLE
  5. KARDEGIC [Suspect]
     Active Substance: ASPIRIN LYSINE
     Dosage: 75 MG, SINGLE
     Route: 048
     Dates: start: 20160723, end: 20160723
  6. TERBUTALINE [Concomitant]
     Active Substance: TERBUTALINE
  7. IRBESARTAN. [Suspect]
     Active Substance: IRBESARTAN
     Dosage: 150 MG, SINGLE
     Route: 048
     Dates: start: 20160723, end: 20160723
  8. PAROXETINE ARROW [Suspect]
     Active Substance: PAROXETINE
     Dosage: 20 MG, SINGLE
     Route: 048
     Dates: start: 20160723, end: 20160723
  9. BACLOFENE [Suspect]
     Active Substance: BACLOFEN
     Dosage: 5 MG, SINGLE
     Route: 048
     Dates: start: 20160723, end: 20160723

REACTIONS (3)
  - Hypotension [Recovering/Resolving]
  - Drug administration error [Recovered/Resolved]
  - Somnolence [Recovering/Resolving]

NARRATIVE: CASE EVENT DATE: 20160723
